FAERS Safety Report 9643820 (Version 4)
Quarter: 2013Q4

REPORT INFORMATION
  Report Type: Spontaneous
  Country: JP (occurrence: JP)
  Receive Date: 20131024
  Receipt Date: 20131206
  Transmission Date: 20140711
  Serious: Yes (Death, Hospitalization, Other)
  Sender: FDA-Public Use
  Company Number: JP-ROCHE-1261154

PATIENT
  Age: 64 Year
  Sex: Male
  Weight: 73 kg

DRUGS (3)
  1. AVASTIN [Suspect]
     Indication: GLIOBLASTOMA
     Route: 041
     Dates: start: 20130711, end: 20130711
  2. TEMODAL [Suspect]
     Indication: GLIOBLASTOMA
     Dosage: DOSAGE IS UNCERTAIN.
     Route: 042
     Dates: start: 20130729, end: 20130802
  3. BETAMETHASONE SODIUM PHOSPHATE/NEOMYCIN SULFATE [Concomitant]
     Indication: CEREBRAL OEDEMA MANAGEMENT
     Dosage: DOSAGE IS UNCERTAIN.
     Route: 042
     Dates: end: 20131010

REACTIONS (4)
  - Intestinal perforation [Fatal]
  - Brain neoplasm [Fatal]
  - Malaise [Unknown]
  - Peritonitis [Unknown]
